FAERS Safety Report 7436735-6 (Version None)
Quarter: 2011Q2

REPORT INFORMATION
  Report Type: 
  Country: None (occurrence: None)
  Receive Date: 20110426
  Receipt Date: 20110418
  Transmission Date: 20111010
  Serious: Yes (Other)
  Sender: FDA-Public Use
  Company Number: US-ELI_LILLY_AND_COMPANY-US201104005715

PATIENT
  Age: 43 Year
  Sex: Female

DRUGS (3)
  1. ZYPREXA ZYDIS [Suspect]
     Indication: BIPOLAR DISORDER
     Dosage: 10 MG, UNK
     Dates: end: 20110410
  2. LAMICTAL [Concomitant]
  3. ATIVAN [Concomitant]

REACTIONS (2)
  - COLOSTOMY [None]
  - DIARRHOEA [None]
